FAERS Safety Report 25929799 (Version 1)
Quarter: 2025Q4

REPORT INFORMATION
  Report Type: Spontaneous
  Country: US (occurrence: US)
  Receive Date: 20251016
  Receipt Date: 20251016
  Transmission Date: 20260118
  Serious: Yes (Other)
  Sender: MYLAN
  Company Number: US-MYLANLABS-2025M1087495

PATIENT
  Age: 65 Year
  Sex: Male

DRUGS (4)
  1. PREDNISONE [Suspect]
     Active Substance: PREDNISONE
     Indication: Giant cell arteritis
     Dosage: 60MG DAILY TAPER OVER 12 MONTHS
  2. PREDNISONE [Suspect]
     Active Substance: PREDNISONE
     Dosage: 60MG DAILY TAPER OVER 12 MONTHS
     Route: 048
  3. PREDNISONE [Suspect]
     Active Substance: PREDNISONE
     Dosage: 60MG DAILY TAPER OVER 12 MONTHS
     Route: 048
  4. PREDNISONE [Suspect]
     Active Substance: PREDNISONE
     Dosage: 60MG DAILY TAPER OVER 12 MONTHS

REACTIONS (1)
  - Drug ineffective [Unknown]
